FAERS Safety Report 6493813-6 (Version None)
Quarter: 2009Q4

REPORT INFORMATION
  Report Type: 
  Country: None (occurrence: None)
  Receive Date: 20091214
  Receipt Date: 20081105
  Transmission Date: 20100525
  Serious: No
  Sender: FDA-Public Use
  Company Number: US-BRISTOL-MYERS SQUIBB COMPANY-14396741

PATIENT
  Age: 56 Year
  Sex: Female
  Weight: 66 kg

DRUGS (5)
  1. ABILIFY [Suspect]
     Indication: BIPOLAR DISORDER
     Dosage: INITIATED WITH 5MG,AUG08;INCREASED TO 10MG,SEP08;DISCONTD AND RESTARTED ON 03NOV08.
     Dates: start: 20080801
  2. ABILIFY [Suspect]
     Indication: DEPRESSION
     Dosage: INITIATED WITH 5MG,AUG08;INCREASED TO 10MG,SEP08;DISCONTD AND RESTARTED ON 03NOV08.
     Dates: start: 20080801
  3. PROZAC [Concomitant]
  4. WELLBUTRIN [Concomitant]
  5. LASIX [Concomitant]

REACTIONS (2)
  - FOOD CRAVING [None]
  - WEIGHT INCREASED [None]
